FAERS Safety Report 4665269-7 (Version None)
Quarter: 2005Q2

REPORT INFORMATION
  Report Type: 
  Country: None (occurrence: None)
  Receive Date: 20050517
  Receipt Date: 20050429
  Transmission Date: 20051028
  Serious: Yes (Hospitalization, Other)
  Sender: FDA-Public Use
  Company Number: US_0411107731

PATIENT
  Age: 42 Year
  Sex: Female

DRUGS (1)
  1. PERMAX [Suspect]
     Indication: MUSCLE TWITCHING
     Dosage: 2 MG DAY
     Dates: start: 19960101, end: 20050309

REACTIONS (2)
  - PATHOLOGICAL GAMBLING [None]
  - SUICIDAL IDEATION [None]
